FAERS Safety Report 15864876 (Version 3)
Quarter: 2019Q1

REPORT INFORMATION
  Report Type: Spontaneous
  Country: FR (occurrence: FR)
  Receive Date: 20190124
  Receipt Date: 20190304
  Transmission Date: 20190417
  Serious: Yes (Other)
  Sender: FDA-Public Use
  Company Number: FR-009507513-1901FRA006755

PATIENT
  Age: 64 Year
  Sex: Male
  Weight: 56 kg

DRUGS (10)
  1. IOMERON [Suspect]
     Active Substance: IOMEPROL
     Dosage: UNK, UNKNOWN FREQ.
     Route: 065
     Dates: start: 20180921
  2. PANTOPRAZOLE [Suspect]
     Active Substance: PANTOPRAZOLE
     Indication: PRODUCT USED FOR UNKNOWN INDICATION
     Dosage: 1 DOSAGE FORM, QD
     Route: 048
  3. FIDAXOMICIN [Suspect]
     Active Substance: FIDAXOMICIN
     Indication: PRODUCT USED FOR UNKNOWN INDICATION
     Dosage: UNK, UNKNOWN FREQ.
     Route: 048
  4. IOMERON [Suspect]
     Active Substance: IOMEPROL
     Dosage: UNK, UNKNOWN FREQ.
     Route: 065
     Dates: start: 20180929
  5. PIPERACILLIN AND TAZOBACTAM [Suspect]
     Active Substance: PIPERACILLIN SODIUM\TAZOBACTAM SODIUM
     Indication: ESCHAR
     Dosage: 4 GRAM, Q8H
     Route: 041
     Dates: start: 20180908
  6. IOMERON [Suspect]
     Active Substance: IOMEPROL
     Indication: PRODUCT USED FOR UNKNOWN INDICATION
     Dosage: UNK, UNKNOWN FREQ.
     Route: 065
     Dates: start: 20180906
  7. KARDEGIC [Suspect]
     Active Substance: ASPIRIN DL-LYSINE
     Indication: PRODUCT USED FOR UNKNOWN INDICATION
     Dosage: 1 DF, ONCE DAILY (POWDER FOR ORAL SOLUTION IN PACKET-DOSE)
     Route: 048
  8. IOMERON [Suspect]
     Active Substance: IOMEPROL
     Dosage: UNK, UNKNOWN FREQ.
     Route: 065
     Dates: start: 20181009
  9. DAPTOMYCIN. [Concomitant]
     Active Substance: DAPTOMYCIN
     Indication: ESCHAR
     Dosage: 500 MILLIGRAM, QD
     Route: 041
     Dates: start: 20180910, end: 20180924
  10. BACLOFEN. [Concomitant]
     Active Substance: BACLOFEN
     Indication: PRODUCT USED FOR UNKNOWN INDICATION
     Dosage: 20 MILLIGRAM, QD
     Route: 048

REACTIONS (1)
  - Dermatitis exfoliative generalised [Recovering/Resolving]

NARRATIVE: CASE EVENT DATE: 20180919
